FAERS Safety Report 23975039 (Version 2)
Quarter: 2024Q4

REPORT INFORMATION
  Report Type: Spontaneous
  Country: US (occurrence: US)
  Receive Date: 20240614
  Receipt Date: 20241022
  Transmission Date: 20250114
  Serious: No
  Sender: BIOGEN
  Company Number: US-BIOGEN-2023BI01239318

PATIENT
  Sex: Male

DRUGS (6)
  1. SKYCLARYS [Suspect]
     Active Substance: OMAVELOXOLONE
     Indication: Friedreich^s ataxia
     Dosage: 150 MILLIGRAM, QD (THREE 50MG 150 MILLIGRAM, QD (THREE 50MG CAPSULES)
     Route: 050
     Dates: start: 20230703
  2. SKYCLARYS [Suspect]
     Active Substance: OMAVELOXOLONE
     Dosage: 150 MILLIGRAM, QD (THREE 50MG 150 MILLIGRAM, QD (THREE 50MG CAPSULES)
     Route: 050
     Dates: start: 20230703
  3. SKYCLARYS [Suspect]
     Active Substance: OMAVELOXOLONE
     Route: 050
     Dates: start: 20230630
  4. SKYCLARYS [Suspect]
     Active Substance: OMAVELOXOLONE
     Route: 050
     Dates: start: 20230703
  5. FUROSEMIDE [Concomitant]
     Active Substance: FUROSEMIDE
     Indication: Product used for unknown indication
     Route: 050
  6. TORSEMIDE [Concomitant]
     Active Substance: TORSEMIDE
     Indication: Product used for unknown indication
     Route: 050

REACTIONS (24)
  - Pain in extremity [Unknown]
  - Heart rate irregular [Unknown]
  - Blood bilirubin abnormal [Unknown]
  - Contusion [Unknown]
  - Ascites [Unknown]
  - Chromaturia [Unknown]
  - Lethargy [Unknown]
  - Nasopharyngitis [Unknown]
  - Feeling hot [Unknown]
  - Hot flush [Unknown]
  - Nystagmus [Unknown]
  - COVID-19 [Unknown]
  - Gallbladder disorder [Unknown]
  - Nausea [Unknown]
  - Myalgia [Unknown]
  - Fatigue [Unknown]
  - Abdominal distension [Recovered/Resolved]
  - Blood cholesterol increased [Unknown]
  - Abdominal pain upper [Unknown]
  - Back pain [Unknown]
  - Muscle spasms [Unknown]
  - Speech disorder [Recovered/Resolved]
  - Coordination abnormal [Recovered/Resolved]
  - Intentional underdose [Unknown]

NARRATIVE: CASE EVENT DATE: 20230101
